FAERS Safety Report 18159141 (Version 1)
Quarter: 2020Q3

REPORT INFORMATION
  Report Type: Spontaneous
  Country: FR (occurrence: FR)
  Receive Date: 20200817
  Receipt Date: 20200817
  Transmission Date: 20201103
  Serious: Yes (Other)
  Sender: FDA-Public Use
  Company Number: FR-FRESENIUS KABI-FK202008381

PATIENT
  Sex: Female

DRUGS (4)
  1. OXYCODONE [Suspect]
     Active Substance: OXYCODONE
     Indication: PROCEDURAL PAIN
     Route: 064
  2. MORPHINE [Suspect]
     Active Substance: MORPHINE
     Indication: PROCEDURAL PAIN
     Dosage: UNKNOWN
     Route: 064
  3. MORPHINE (MANUFACTURER UNKNOWN) [Suspect]
     Active Substance: MORPHINE
     Indication: BACK PAIN
     Dosage: MEAN DOSE OF 50 MG OF OXYNORM PER DAY (PATIENT?CONTROLLED ANALGESIA)
     Route: 064
  4. NEFOPAM [Suspect]
     Active Substance: NEFOPAM
     Indication: PROCEDURAL PAIN
     Route: 064

REACTIONS (7)
  - Neonatal anoxia [Recovered/Resolved]
  - Urinary bladder rupture [Recovered/Resolved]
  - Foetal exposure during pregnancy [Recovered/Resolved]
  - Intraventricular haemorrhage [Recovered/Resolved]
  - Premature baby [Recovered/Resolved]
  - Foetal megacystis [Recovered/Resolved]
  - Ischaemia [Recovered/Resolved]
